FAERS Safety Report 20634533 (Version 2)
Quarter: 2022Q2

REPORT INFORMATION
  Report Type: Spontaneous
  Country: FR (occurrence: FR)
  Receive Date: 20220325
  Receipt Date: 20220421
  Transmission Date: 20220721
  Serious: Yes (Other)
  Sender: FDA-Public Use
  Company Number: FR-AFSSAPS-PV20220504

PATIENT
  Age: 23 Year
  Sex: Male
  Weight: 69 kg

DRUGS (9)
  1. VALACYCLOVIR [Suspect]
     Active Substance: VALACYCLOVIR HYDROCHLORIDE
     Indication: Antiviral prophylaxis
     Dosage: 500 MILLIGRAM, ONCE A DAY
     Route: 048
     Dates: start: 20220121
  2. BACTRIM [Suspect]
     Active Substance: SULFAMETHOXAZOLE\TRIMETHOPRIM
     Indication: Antibiotic prophylaxis
     Dosage: 800 MILLIGRAM, 72 HOURS
     Route: 048
     Dates: start: 20220121, end: 20220128
  3. BLEOMYCIN SULFATE [Suspect]
     Active Substance: BLEOMYCIN SULFATE
     Indication: Hodgkin^s disease nodular sclerosis stage II
     Dosage: 15 MILLIGRAM, 15 DAYS
     Route: 042
     Dates: start: 20220128, end: 202202
  4. CYCLOPHOSPHAMIDE [Suspect]
     Active Substance: CYCLOPHOSPHAMIDE
     Indication: Hodgkin^s disease nodular sclerosis stage II
     Dosage: 2300 MILLIGRAM, 15 DAY
     Route: 042
     Dates: start: 20220121, end: 202202
  5. DACARBAZINE [Suspect]
     Active Substance: DACARBAZINE
     Indication: Hodgkin^s disease nodular sclerosis stage II
     Dosage: 960 MILLIGRAM, 15 DAY
     Route: 042
     Dates: start: 20220121
  6. DOXORUBICIN [Suspect]
     Active Substance: DOXORUBICIN
     Indication: Hodgkin^s disease nodular sclerosis stage II
     Dosage: 68 MILLIGRAM, 15 DAYS
     Route: 042
     Dates: start: 20220121
  7. ETOPOPHOS [Suspect]
     Active Substance: ETOPOSIDE PHOSPHATE
     Indication: Hodgkin^s disease nodular sclerosis stage II
     Dosage: 760 MILLIGRAM, 15 DAY
     Route: 042
     Dates: start: 20220121, end: 202202
  8. PREDNISONE [Suspect]
     Active Substance: PREDNISONE
     Indication: Hodgkin^s disease nodular sclerosis stage II
     Dosage: 80 MILLIGRAM, ONCE A DAY
     Route: 048
     Dates: start: 20220121, end: 202202
  9. VINCRISTINE [Suspect]
     Active Substance: VINCRISTINE
     Indication: Hodgkin^s disease nodular sclerosis stage II
     Dosage: 2 MILLIGRAM, 15 DAY
     Route: 042
     Dates: start: 20220128, end: 202202

REACTIONS (1)
  - Mixed liver injury [Recovered/Resolved]

NARRATIVE: CASE EVENT DATE: 20220128
